FAERS Safety Report 4616599-6 (Version None)
Quarter: 2005Q1

REPORT INFORMATION
  Report Type: 
  Country: None (occurrence: None)
  Receive Date: 20050318
  Receipt Date: 20050302
  Transmission Date: 20050727
  Serious: Yes (Death)
  Sender: FDA-Public Use
  Company Number: L04-USA-07403-49

PATIENT
  Age: 58 Year
  Sex: Male

DRUGS (6)
  1. DILTIAZEM [Suspect]
  2. CARISOPRODOL [Suspect]
  3. MEPROBAMATE [Suspect]
  4. MORPHINE [Suspect]
  5. ACETAMINOPHEN [Concomitant]
  6. DIAZEPAM [Concomitant]

REACTIONS (15)
  - ACCIDENT [None]
  - ASPARTATE AMINOTRANSFERASE INCREASED [None]
  - BLOOD CREATINE INCREASED [None]
  - BLOOD CREATINE PHOSPHOKINASE INCREASED [None]
  - BLOOD GLUCOSE INCREASED [None]
  - BLOOD PH DECREASED [None]
  - BLOOD UREA INCREASED [None]
  - COMA [None]
  - DRUG TOXICITY [None]
  - ELECTROCARDIOGRAM QRS COMPLEX SHORTENED [None]
  - HEART RATE INCREASED [None]
  - HEPATIC CONGESTION [None]
  - INTENTIONAL MISUSE [None]
  - PCO2 DECREASED [None]
  - SINUS TACHYCARDIA [None]
